FAERS Safety Report 16131191 (Version 1)
Quarter: 2019Q1

REPORT INFORMATION
  Report Type: Spontaneous
  Country: DE (occurrence: DE)
  Receive Date: 20190328
  Receipt Date: 20190328
  Transmission Date: 20190418
  Serious: Yes (Hospitalization, Other)
  Sender: FDA-Public Use
  Company Number: DE-009507513-1903DEU012606

PATIENT
  Age: 63 Year
  Sex: Male
  Weight: 100 kg

DRUGS (13)
  1. EPLERENONE. [Concomitant]
     Active Substance: EPLERENONE
     Indication: CARDIAC FAILURE
     Dosage: 1-0-0-0 ON EVERY SECOND DAY
  2. BISOPROLOL [Concomitant]
     Active Substance: BISOPROLOL
     Indication: HEART RATE IRREGULAR
     Dosage: TWICE DAILY (1-0-1-0)
  3. ELIQUIS [Concomitant]
     Active Substance: APIXABAN
     Indication: ANTICOAGULANT THERAPY
     Dosage: TWICE DAILY (1-0-1-0)
  4. ENTRESTO [Concomitant]
     Active Substance: SACUBITRIL\VALSARTAN
     Indication: GENERAL SYMPTOM
     Dosage: TWICE DAILY (1-0-1-0)
  5. XIPAMIDE [Concomitant]
     Active Substance: XIPAMIDE
     Indication: DIURETIC THERAPY
     Dosage: 0.5-0-0-0
  6. TORSEMIDE. [Concomitant]
     Active Substance: TORSEMIDE
     Indication: DIURETIC THERAPY
     Dosage: 0.5-0.5-0-0
  7. PANTOPRAZOLE [Concomitant]
     Active Substance: PANTOPRAZOLE
     Indication: EROSIVE OESOPHAGITIS
     Dosage: 1-0-1-0
  8. XELEVIA [Suspect]
     Active Substance: SITAGLIPTIN PHOSPHATE
     Indication: TYPE 2 DIABETES MELLITUS
     Dosage: 1X25 MILLIGRAM
     Route: 048
     Dates: start: 20190225
  9. KALIUM VERLA [Concomitant]
     Active Substance: POTASSIUM CITRATE
     Indication: HYPONATRAEMIA
     Dosage: 2-2-2-2
  10. ADENURIC [Concomitant]
     Active Substance: FEBUXOSTAT
     Indication: BLOOD URIC ACID
     Dosage: ONCE DAILY (1-0-0-0)
  11. NOVAMINSULFON [Concomitant]
     Active Substance: METAMIZOLE
     Indication: PAIN
     Dosage: AS NEEDED 1-1-1-1
  12. ADENURIC [Concomitant]
     Active Substance: FEBUXOSTAT
     Indication: GOUT
  13. TRAMADOL HYDROCHLORIDE. [Concomitant]
     Active Substance: TRAMADOL HYDROCHLORIDE
     Dosage: AS NEEDED 2X1

REACTIONS (5)
  - Haemoglobin decreased [Unknown]
  - Red blood cell macrocytes present [Unknown]
  - Blood creatine abnormal [Unknown]
  - Melaena [Unknown]
  - Blood urea abnormal [Unknown]

NARRATIVE: CASE EVENT DATE: 2019
